FAERS Safety Report 15658083 (Version 2)
Quarter: 2018Q4

REPORT INFORMATION
  Report Type: Spontaneous
  Country: JP (occurrence: JP)
  Receive Date: 20181126
  Receipt Date: 20181227
  Transmission Date: 20190205
  Serious: Yes (Other)
  Sender: FDA-Public Use
  Company Number: PHJP2018JP019837

PATIENT
  Sex: Male

DRUGS (4)
  1. NEORAL [Suspect]
     Active Substance: CYCLOSPORINE
     Indication: APLASIA PURE RED CELL
     Dosage: 100 MG, BID
     Route: 048
  2. NEORAL [Interacting]
     Active Substance: CYCLOSPORINE
     Dosage: 250 MG, UNK
     Route: 048
  3. EXJADE [Interacting]
     Active Substance: DEFERASIROX
     Indication: APLASIA PURE RED CELL
     Dosage: 250 MG, QD
     Route: 048
     Dates: start: 201806, end: 20181120
  4. NEORAL [Interacting]
     Active Substance: CYCLOSPORINE
     Dosage: 300 MG, UNK
     Route: 048
     Dates: start: 20181113

REACTIONS (3)
  - Drug interaction [Unknown]
  - Haemoglobin decreased [Recovered/Resolved]
  - Product use in unapproved indication [Unknown]

NARRATIVE: CASE EVENT DATE: 20181120
